FAERS Safety Report 15241924 (Version 1)
Quarter: 2018Q3

REPORT INFORMATION
  Report Type: Report from Study
  Country: None (occurrence: IT)
  Receive Date: 20180806
  Receipt Date: 20180806
  Transmission Date: 20181010
  Serious: Yes (Death)
  Sender: FDA-Public Use
  Company Number: IT-ABBVIE-18K-083-2429202-00

PATIENT
  Age: 80 Year
  Sex: Female

DRUGS (1)
  1. DUODOPA [Suspect]
     Active Substance: CARBIDOPA\LEVODOPA
     Indication: PARKINSON^S DISEASE
     Dosage: MD 9,5+3?CR 3,5?ED 3
     Route: 050
     Dates: start: 20171016

REACTIONS (2)
  - Stoma site erythema [Unknown]
  - Systemic infection [Fatal]

NARRATIVE: CASE EVENT DATE: 201807
